FAERS Safety Report 4780245-1 (Version None)
Quarter: 2005Q3

REPORT INFORMATION
  Report Type: 
  Country: None (occurrence: None)
  Receive Date: 20050927
  Receipt Date: 20050413
  Transmission Date: 20060218
  Serious: Yes (Death, Hospitalization)
  Sender: FDA-Public Use
  Company Number: US-ROCHE-401884

PATIENT
  Age: 40 Year
  Sex: Male
  Weight: 81.2 kg

DRUGS (1)
  1. PEGASYS [Suspect]
     Indication: HEPATITIS C
     Dosage: ON AN UNKNOWN DATE, STRENGTH WAS DECREASED FROM 180 MCG TO 90 MCG.
     Route: 058
     Dates: start: 20041208, end: 20050309

REACTIONS (3)
  - BLOOD ALKALINE PHOSPHATASE INCREASED [None]
  - HEPATIC FAILURE [None]
  - JAUNDICE [None]
